FAERS Safety Report 11866180 (Version 1)
Quarter: 2015Q4

REPORT INFORMATION
  Report Type: Report from Study
  Country: US (occurrence: US)
  Receive Date: 20151223
  Receipt Date: 20151223
  Transmission Date: 20160305
  Serious: No
  Sender: FDA-Public Use
  Company Number: US-EXELIXIS-CABO-15005772

PATIENT
  Age: 55 Year
  Sex: Male

DRUGS (1)
  1. COMETRIQ [Suspect]
     Active Substance: CABOZANTINIB S-MALATE
     Indication: THYROID CANCER
     Dosage: 140 MG, QD
     Route: 048
     Dates: start: 20151011

REACTIONS (6)
  - Skin discolouration [Unknown]
  - Skin exfoliation [Unknown]
  - Pain in extremity [Unknown]
  - Tenderness [Unknown]
  - Wound [Unknown]
  - Fatigue [Unknown]

NARRATIVE: CASE EVENT DATE: 201510
